FAERS Safety Report 9209342 (Version 2)
Quarter: 2013Q2

REPORT INFORMATION
  Report Type: Spontaneous
  Country: US (occurrence: US)
  Receive Date: 20130404
  Receipt Date: 20130520
  Transmission Date: 20140414
  Serious: Yes (Hospitalization)
  Sender: FDA-Public Use
  Company Number: US-PFIZER INC-2013104728

PATIENT
  Age: 73 Year
  Sex: Female
  Weight: 58.96 kg

DRUGS (2)
  1. LIPITOR [Suspect]
     Indication: BLOOD CHOLESTEROL INCREASED
     Dosage: 20 MG, DAILY
     Route: 048
  2. BONIVA [Concomitant]
     Indication: BONE DISORDER
     Dosage: UNK

REACTIONS (1)
  - Pneumothorax [Recovered/Resolved]
